FAERS Safety Report 22198194 (Version 1)
Quarter: 2023Q2

REPORT INFORMATION
  Report Type: Spontaneous
  Country: US (occurrence: US)
  Receive Date: 20230411
  Receipt Date: 20230411
  Transmission Date: 20230722
  Serious: Yes (Hospitalization)
  Sender: FDA-Public Use
  Company Number: 23_00022884(0)

PATIENT
  Age: 58 Year
  Sex: Male

DRUGS (82)
  1. DEXMEDETOMIDINE HYDROCHLORIDE [Suspect]
     Active Substance: DEXMEDETOMIDINE HYDROCHLORIDE
     Indication: Delirium
     Dosage: DAY 1 0.4 MCG/KG/H TITRATED UPTO 2 MCG/KG/H (1 HR)
     Route: 042
  2. DEXMEDETOMIDINE HYDROCHLORIDE [Suspect]
     Active Substance: DEXMEDETOMIDINE HYDROCHLORIDE
     Dosage: DAY 02, 2 MCG/KG/H TO 0.5 MCG/KG/H (1 HR)
     Route: 042
  3. DEXMEDETOMIDINE HYDROCHLORIDE [Suspect]
     Active Substance: DEXMEDETOMIDINE HYDROCHLORIDE
     Dosage: DAY 03, 0.5 MCG/KG/H TO 0.4 MCG/KG/H, OFF BY 07:30 (1 HR)
     Route: 042
  4. DEXMEDETOMIDINE HYDROCHLORIDE [Suspect]
     Active Substance: DEXMEDETOMIDINE HYDROCHLORIDE
     Dosage: DAY 03 OFF BY 07:30 (0.4 UG/KG,1 HR)
     Route: 042
  5. QUETIAPINE [Suspect]
     Active Substance: QUETIAPINE
     Indication: Delirium
     Dosage: ON DAY-01 (50 MG,1 IN 12 HR)
     Route: 065
  6. QUETIAPINE [Suspect]
     Active Substance: QUETIAPINE
     Dosage: ON DAY-02 (50 MG,1 IN 8 HR)
     Route: 065
  7. QUETIAPINE [Suspect]
     Active Substance: QUETIAPINE
     Dosage: ON DAY-03 (50 MG,1 IN 1 D)
     Route: 065
  8. QUETIAPINE [Suspect]
     Active Substance: QUETIAPINE
     Dosage: ON DAY-07 (100 MG,1 IN 1 D)
     Route: 065
  9. QUETIAPINE [Suspect]
     Active Substance: QUETIAPINE
     Dosage: ON DAY-08 (100 MG,1 IN 12 HR)
     Route: 065
  10. QUETIAPINE [Suspect]
     Active Substance: QUETIAPINE
     Dosage: ON DAY-09 (100 MG,1 IN 8 HR)
     Route: 065
  11. QUETIAPINE [Suspect]
     Active Substance: QUETIAPINE
     Dosage: ON DAY-10 (100 MG,1 IN 1 D)
     Route: 065
  12. QUETIAPINE [Suspect]
     Active Substance: QUETIAPINE
     Dosage: ON DAY-10 (150 MG,1 IN 12 HR)
     Route: 065
  13. QUETIAPINE [Suspect]
     Active Substance: QUETIAPINE
     Dosage: ON DAY-11 (150 MG,1 IN 1 D)
     Route: 065
  14. QUETIAPINE [Suspect]
     Active Substance: QUETIAPINE
     Dosage: ON DAY-11 (200 MG,1 IN 8 HR)
     Route: 065
  15. QUETIAPINE [Suspect]
     Active Substance: QUETIAPINE
     Dosage: ON DAY-12 AND 13 (200 MG,1 IN 6 HR)
     Route: 065
  16. QUETIAPINE [Suspect]
     Active Substance: QUETIAPINE
     Dosage: ON DAY-14 AND 15 (200 MG,1 IN 12 HR)
     Route: 065
  17. QUETIAPINE [Suspect]
     Active Substance: QUETIAPINE
     Dosage: ON DAY-16 (125 MG,1 IN 1 D)
     Route: 065
  18. QUETIAPINE [Suspect]
     Active Substance: QUETIAPINE
     Dosage: ON DAY-17 AND 18 (125 MG,1 IN 6 HR)
     Route: 065
  19. QUETIAPINE [Suspect]
     Active Substance: QUETIAPINE
     Dosage: ON DAY-19 AND 20 (125 MG,1 IN 8 HR)
     Route: 065
  20. QUETIAPINE [Suspect]
     Active Substance: QUETIAPINE
     Dosage: ON DAY-21 (125 MG,1 IN 12 HR)
     Route: 065
  21. QUETIAPINE [Suspect]
     Active Substance: QUETIAPINE
     Dosage: ON DAY-21 (75 MG,1 IN 12 HR)
     Route: 065
  22. QUETIAPINE [Suspect]
     Active Substance: QUETIAPINE
     Dosage: ON DAY-22 AND 23 (75 MG,1 IN 8 HR)
     Route: 065
  23. QUETIAPINE [Suspect]
     Active Substance: QUETIAPINE
     Dosage: ON DAY-24 (75 MG,1 IN 12 HR)
     Route: 065
  24. QUETIAPINE [Suspect]
     Active Substance: QUETIAPINE
     Dosage: ON DAY-26 (75 MG,1 IN 1 D)
     Route: 065
  25. KETAMINE [Suspect]
     Active Substance: KETAMINE
     Indication: Delirium
     Dosage: DAY 01, 530MG ONCE A DAY, 60MG TWICE A DAY (1 )
     Route: 065
  26. KETAMINE [Suspect]
     Active Substance: KETAMINE
     Dosage: DAY 02, 50 MG THRICE DAILY, 60 MG TWICE DAILY INFUSION: 0.06 MG/KG/HR TITRATED UPTO 0.5 MG/KG/HR
     Route: 065
  27. KETAMINE [Suspect]
     Active Substance: KETAMINE
     Dosage: DAY 03 AND 04 INFUSION: 0.5 MG/KG/HR (0.5 MG/KG,1 HR)
     Route: 065
  28. KETAMINE [Suspect]
     Active Substance: KETAMINE
     Dosage: DAY 05 INFUSION: 0.5 MG/KG/HR TO 0.25 MG/KG/HR (WEANING PERIOD) (1 HR)
     Route: 065
  29. KETAMINE [Suspect]
     Active Substance: KETAMINE
     Dosage: DAY 06 INFUSION: 0.25 MG/KG/HR TO 0.125 MG/KG/HR (WEANING PERIOD) (1 HR)
     Route: 065
  30. KETAMINE [Suspect]
     Active Substance: KETAMINE
     Dosage: DAY 07 INFUSION: 0.125 MG/KG/HR TO 0.5 MG/KG/HR (WEANING PERIOD) (1 HR
     Route: 065
  31. KETAMINE [Suspect]
     Active Substance: KETAMINE
     Dosage: DAY 08 INFUSION: 0.05 MG/KG/HR AND STOPPED AT 01.00 (WEANING PERIOD) (1 HR)
     Route: 065
  32. KETAMINE [Suspect]
     Active Substance: KETAMINE
     Dosage: DAY 09 INFUSION RESUME AT 0.125 MG/KG/HR FOR 2.5 HOURS (1 HR)
     Route: 065
  33. LORAZEPAM [Suspect]
     Active Substance: LORAZEPAM
     Indication: Delirium
     Dosage: DAY 01(SCHEDULED DOSING)(1 MG,1D)
     Route: 065
  34. LORAZEPAM [Suspect]
     Active Substance: LORAZEPAM
     Indication: Agitation
     Dosage: DAY 02 (2 MG,1 IN 12 HR)
     Route: 065
  35. LORAZEPAM [Suspect]
     Active Substance: LORAZEPAM
     Dosage: 3DAY 03 (2 MG,1 IN 8 HR)
     Route: 065
  36. LORAZEPAM [Suspect]
     Active Substance: LORAZEPAM
     Dosage: DAY 04 (2 MG,1 IN 12 HR)
     Route: 065
  37. LORAZEPAM [Suspect]
     Active Substance: LORAZEPAM
     Dosage: DAY 05 (2 MG,1 IN 8 HR)
     Route: 065
  38. LORAZEPAM [Suspect]
     Active Substance: LORAZEPAM
     Dosage: DAY 06 (2 MG,1 IN 12 HR)
     Route: 065
  39. LORAZEPAM [Suspect]
     Active Substance: LORAZEPAM
     Dosage: DAY 07 (FIVE TIMES A DAY) (2 MG)
     Route: 065
  40. LORAZEPAM [Suspect]
     Active Substance: LORAZEPAM
     Dosage: DAY 08 (2 MG,1 IN 8 HR)
     Route: 065
  41. LORAZEPAM [Suspect]
     Active Substance: LORAZEPAM
     Dosage: DAY 09 (2 MG,1 IN 8 HR)
     Route: 065
  42. LORAZEPAM [Suspect]
     Active Substance: LORAZEPAM
     Dosage: DAY 10 (2 MG,1 IN 12 HR)
     Route: 065
  43. LORAZEPAM [Suspect]
     Active Substance: LORAZEPAM
     Dosage: DAY 11 (2 MG,1 IN 12 HR)
     Route: 065
  44. LORAZEPAM [Suspect]
     Active Substance: LORAZEPAM
     Dosage: DAY 12 (2 MG,1 D)
     Route: 065
  45. HALOPERIDOL [Suspect]
     Active Substance: HALOPERIDOL
     Indication: Delirium
     Dosage: ON DAY-01 (5 MG,1 IN 8 HR)
     Route: 065
  46. HALOPERIDOL [Suspect]
     Active Substance: HALOPERIDOL
     Indication: Agitation
     Dosage: ON DAY-01 (10 MG,1 IN 12 HR)
     Route: 065
  47. HALOPERIDOL [Suspect]
     Active Substance: HALOPERIDOL
     Dosage: ON DAY-02 (5 MG,1 IN 4 HR)
     Route: 065
  48. HALOPERIDOL [Suspect]
     Active Substance: HALOPERIDOL
     Dosage: ON DAY-04 (5 MG,1 IN 12 HR)
     Route: 065
  49. HALOPERIDOL [Suspect]
     Active Substance: HALOPERIDOL
     Dosage: ON DAY-08 (5 MG,1 IN 8 HR)
     Route: 065
  50. HALOPERIDOL [Suspect]
     Active Substance: HALOPERIDOL
     Dosage: ON DAY-14 (5 MG,1 IN 12 HR)
     Route: 065
  51. HALOPERIDOL [Suspect]
     Active Substance: HALOPERIDOL
     Dosage: ON DAY-16 (5 MG,1 IN 1 D)
     Route: 065
  52. VALPROATE [Suspect]
     Active Substance: VALPROIC ACID
     Indication: Delirium
     Dosage: DAY 02 TOTAL: 1852 MG 750 MG (20 MG/KG,1 D)
     Route: 042
  53. VALPROATE [Suspect]
     Active Substance: VALPROIC ACID
     Dosage: ON DAY-03 (750 MG,1 IN 8 HR)
     Route: 042
  54. VALPROATE [Suspect]
     Active Substance: VALPROIC ACID
     Dosage: ON DAY-04 (750 MG,1 IN 12 HR)
     Route: 065
  55. VALPROATE [Suspect]
     Active Substance: VALPROIC ACID
     Dosage: FROM DAY 05 TO DAY 07 (750 MG,1 IN 8 HR)
     Route: 065
  56. VALPROATE [Suspect]
     Active Substance: VALPROIC ACID
     Dosage: DAY 08 (750 MG,1 IN 12 HR
     Route: 065
  57. VALPROATE [Suspect]
     Active Substance: VALPROIC ACID
     Dosage: FROM DAY 09 TO DAY 15 (750 MG,1 IN 8 HR)
     Route: 065
  58. VALPROATE [Suspect]
     Active Substance: VALPROIC ACID
     Dosage: DAY 16 (750 MG,1 IN 1 D)
     Route: 065
  59. VALPROATE [Suspect]
     Active Substance: VALPROIC ACID
     Dosage: DAY 16 (500 MG,1 IN 1 D)
     Route: 065
  60. VALPROATE [Suspect]
     Active Substance: VALPROIC ACID
     Dosage: DAY 17 AND DAY 18 (500 MG,1 IN 12 HR)
     Route: 065
  61. VALPROATE [Suspect]
     Active Substance: VALPROIC ACID
     Dosage: DAY 19 (500 MG,1 IN 1 D)
     Route: 065
  62. VALPROATE [Suspect]
     Active Substance: VALPROIC ACID
     Dosage: DAY 19 (250 MG,1 IN 1 D)
     Route: 065
  63. VALPROATE [Suspect]
     Active Substance: VALPROIC ACID
     Dosage: DAY 20 (250 MG,1 IN 12 HR)
     Route: 065
  64. VALPROATE [Suspect]
     Active Substance: VALPROIC ACID
     Dosage: DAY 22 (250 MG,1 IN 1 D)
     Route: 065
  65. GABAPENTIN [Suspect]
     Active Substance: GABAPENTIN
     Indication: Neuralgia
     Dosage: ON DAY-01 (300 MG,1 IN 12 HR)
     Route: 065
  66. GABAPENTIN [Suspect]
     Active Substance: GABAPENTIN
     Dosage: ON DAY-02 (300 MG,1 IN 12 HR)
     Route: 065
  67. GABAPENTIN [Suspect]
     Active Substance: GABAPENTIN
     Dosage: ON DAY-02 (600 MG,1 IN 12 HR)
     Route: 065
  68. GABAPENTIN [Suspect]
     Active Substance: GABAPENTIN
     Dosage: ON DAY-02 (600 MG,12 HR)
     Route: 065
  69. GABAPENTIN [Suspect]
     Active Substance: GABAPENTIN
     Dosage: ON DAY-03 (600 MG,1 IN 8 HR)
     Route: 065
  70. GABAPENTIN [Suspect]
     Active Substance: GABAPENTIN
     Dosage: ON DAY-04 (600 MG,1 IN 1 D)
     Route: 065
  71. GABAPENTIN [Suspect]
     Active Substance: GABAPENTIN
     Dosage: ON DAY-04 (900 MG,1 IN 1 D)
     Route: 065
  72. GABAPENTIN [Suspect]
     Active Substance: GABAPENTIN
     Dosage: ON DAY-04, 05, 06, 07 AND 08 (900 MG,1 IN 12 HR)
     Route: 065
  73. GABAPENTIN [Suspect]
     Active Substance: GABAPENTIN
     Dosage: FROM DAY 09 TO DAY 13 (900 MG,1 IN 8 HR)
     Route: 065
  74. GABAPENTIN [Suspect]
     Active Substance: GABAPENTIN
     Dosage: ON DAY 14 (900 MG,1 IN 12 HR)
     Route: 065
  75. GABAPENTIN [Suspect]
     Active Substance: GABAPENTIN
     Dosage: ON DAY 15 (900 MG,1 IN 8 HR)
     Route: 065
  76. GABAPENTIN [Suspect]
     Active Substance: GABAPENTIN
     Dosage: ON DAY 16 (900 MG,1 IN 12 HR)
     Route: 065
  77. GABAPENTIN [Suspect]
     Active Substance: GABAPENTIN
     Dosage: FROM DAY 17 TO DAY 25 (900 MG,1 IN 8 HR)
     Route: 065
  78. GABAPENTIN [Suspect]
     Active Substance: GABAPENTIN
     Dosage: ON DAY 26 (900 MG,1 IN 1 D)
     Route: 065
  79. MIDAZOLAM [Suspect]
     Active Substance: MIDAZOLAM
     Indication: Delirium
     Dosage: 7 TIMES A DAY (ON DAY-01) (2 MG)
     Route: 065
  80. MIDAZOLAM [Suspect]
     Active Substance: MIDAZOLAM
     Indication: Agitation
     Dosage: DAY 01 (4 MG,1 IN 6 HR)
     Route: 065
  81. MIDAZOLAM [Suspect]
     Active Substance: MIDAZOLAM
     Dosage: DAY 02 (3 MG,1 IN 6 HR)
     Route: 065
  82. MIDAZOLAM [Suspect]
     Active Substance: MIDAZOLAM
     Dosage: DAY 04 (4 MG,1 IN 1 D)
     Route: 065

REACTIONS (4)
  - Product use in unapproved indication [Unknown]
  - Drug ineffective for unapproved indication [Unknown]
  - Overdose [Unknown]
  - Sedation complication [Unknown]
